FAERS Safety Report 13539665 (Version 1)
Quarter: 2017Q2

REPORT INFORMATION
  Report Type: Spontaneous
  Country: BE (occurrence: BE)
  Receive Date: 20170512
  Receipt Date: 20170512
  Transmission Date: 20170830
  Serious: Yes (Hospitalization)
  Sender: FDA-Public Use
  Company Number: BE-ASTELLAS-2017US017616

PATIENT

DRUGS (4)
  1. PROGRAFT [Suspect]
     Active Substance: TACROLIMUS
     Indication: TRANSPLANT
     Route: 065
  2. PROGRAFT [Suspect]
     Active Substance: TACROLIMUS
     Dosage: 2 MG - 1 MG, TWICE DAILY
     Route: 065
  3. PROGRAFT [Suspect]
     Active Substance: TACROLIMUS
     Dosage: 2.5 MG - 2MG, TWICE DAILY
     Route: 065
  4. PROGRAFT [Suspect]
     Active Substance: TACROLIMUS
     Dosage: 2.5 MG - 2MG, TWICE DAILY
     Route: 065

REACTIONS (4)
  - Encephalopathy [Unknown]
  - General physical health deterioration [Unknown]
  - Off label use [Unknown]
  - Encephalopathy [Unknown]

NARRATIVE: CASE EVENT DATE: 20160614
